FAERS Safety Report 18085716 (Version 1)
Quarter: 2020Q3

REPORT INFORMATION
  Report Type: Spontaneous
  Country: US (occurrence: US)
  Receive Date: 20200728
  Receipt Date: 20200728
  Transmission Date: 20201103
  Serious: Yes (Other)
  Sender: FDA-Public Use
  Company Number: None

PATIENT
  Age: 74 Year
  Sex: Female
  Weight: 110.5 kg

DRUGS (2)
  1. REMDESIVIR. [Suspect]
     Active Substance: REMDESIVIR
     Indication: COVID-19
     Route: 041
     Dates: start: 20200719, end: 20200724
  2. CEFTRIAXONE. [Concomitant]
     Active Substance: CEFTRIAXONE
     Dates: start: 20200723, end: 20200727

REACTIONS (6)
  - Condition aggravated [None]
  - Localised oedema [None]
  - Infusion site pain [None]
  - Infusion site extravasation [None]
  - Infusion site bruising [None]
  - Ecchymosis [None]

NARRATIVE: CASE EVENT DATE: 20200724
